FAERS Safety Report 8424250-2 (Version None)
Quarter: 2012Q2

REPORT INFORMATION
  Report Type: 
  Country: None (occurrence: None)
  Receive Date: 20120608
  Receipt Date: 20120319
  Transmission Date: 20120825
  Serious: No
  Sender: FDA-Public Use
  Company Number: US-ASTRAZENECA-2011SE74074

PATIENT
  Age: 71 Year
  Sex: Male
  Weight: 79.4 kg

DRUGS (5)
  1. FLUTICASONE PROPIONATE [Concomitant]
     Indication: SEASONAL ALLERGY
  2. PULMICORT FLEXHALER [Suspect]
     Indication: OBSTRUCTIVE AIRWAYS DISORDER
     Route: 055
     Dates: start: 20110501
  3. PULMICORT FLEXHALER [Suspect]
     Dosage: TWO PUFFS EVERY 12 HOURS
     Route: 055
  4. PULMICORT FLEXHALER [Suspect]
     Indication: ASTHMA
     Route: 055
     Dates: start: 20110501
  5. PULMICORT FLEXHALER [Suspect]
     Dosage: TWO PUFFS EVERY 12 HOURS
     Route: 055

REACTIONS (2)
  - SEASONAL ALLERGY [None]
  - DYSPNOEA [None]
